FAERS Safety Report 8198455-2 (Version None)
Quarter: 2012Q1

REPORT INFORMATION
  Report Type: 
  Country: None (occurrence: None)
  Receive Date: 20120309
  Receipt Date: 20120104
  Transmission Date: 20120608
  Serious: No
  Sender: FDA-Public Use
  Company Number: US-AMGEN-USASP2011059176

PATIENT
  Age: 67 Year
  Sex: Female

DRUGS (9)
  1. CYMBALTA [Concomitant]
  2. CALCIUM [Concomitant]
  3. PRILOSEC [Concomitant]
  4. TRAZODONE HCL [Concomitant]
  5. PROLIA [Suspect]
     Indication: OSTEOPOROSIS POSTMENOPAUSAL
     Dosage: 60 MG, Q6MO
     Dates: start: 20111027
  6. HYDROCORTISONE [Suspect]
     Route: 061
  7. ATIVAN [Concomitant]
  8. LORCET-HD [Concomitant]
  9. RESTORIL [Concomitant]

REACTIONS (3)
  - SKIN DISCOMFORT [None]
  - PRURITUS GENERALISED [None]
  - CONTUSION [None]
